FAERS Safety Report 6894926-7 (Version None)
Quarter: 2010Q3

REPORT INFORMATION
  Report Type: 
  Country: None (occurrence: None)
  Receive Date: 20100802
  Receipt Date: 20100726
  Transmission Date: 20110219
  Serious: Yes (Other)
  Sender: FDA-Public Use
  Company Number: US-ROCHE-717414

PATIENT
  Age: 80 Year
  Sex: Female

DRUGS (4)
  1. NAPROXEN [Suspect]
     Dosage: EVERY 8 HOURS AS AS NEEDED
     Route: 048
  2. IBUPROFEN [Interacting]
     Dosage: EVERY 8 HOURS AS NEEDED
     Route: 048
  3. ACE INHIBITOR [Suspect]
     Indication: PRODUCT USED FOR UNKNOWN INDICATION
     Route: 065
  4. FOSINOPRIL SODIUM [Concomitant]
     Indication: HYPERTENSION
     Dosage: FREQUENCY: DAILY
     Route: 048

REACTIONS (2)
  - DRUG INTERACTION [None]
  - PERIORBITAL OEDEMA [None]
